FAERS Safety Report 13591731 (Version 1)
Quarter: 2017Q2

REPORT INFORMATION
  Report Type: Spontaneous
  Country: GB (occurrence: GB)
  Receive Date: 20170529
  Receipt Date: 20170529
  Transmission Date: 20170830
  Serious: Yes (Hospitalization, Other)
  Sender: FDA-Public Use
  Company Number: GB-TEVA-770847ACC

PATIENT
  Age: 59 Year
  Sex: Female

DRUGS (17)
  1. CLARITHROMYCIN. [Suspect]
     Active Substance: CLARITHROMYCIN
     Indication: FURUNCLE
     Dosage: 1000 MILLIGRAM DAILY;
     Route: 048
     Dates: start: 20170501, end: 20170506
  2. CETIRIZINE [Concomitant]
     Active Substance: CETIRIZINE HYDROCHLORIDE
  3. LEVOTHYROXINE. [Concomitant]
     Active Substance: LEVOTHYROXINE
  4. SITAGLIPTIN [Concomitant]
     Active Substance: SITAGLIPTIN
  5. GENERICS UK GLICLAZIDE [Concomitant]
     Active Substance: GLICLAZIDE
  6. VALSARTAN. [Concomitant]
     Active Substance: VALSARTAN
  7. ATORVASTATIN [Concomitant]
     Active Substance: ATORVASTATIN
  8. LANSOPRAZOLE. [Concomitant]
     Active Substance: LANSOPRAZOLE
  9. TIMOLOL. [Concomitant]
     Active Substance: TIMOLOL
  10. FERROUS SULFATE DRIED [Concomitant]
  11. BIMATOPROST. [Concomitant]
     Active Substance: BIMATOPROST
  12. DILTIAZEM. [Suspect]
     Active Substance: DILTIAZEM
     Indication: ESSENTIAL HYPERTENSION
     Dosage: 180 MILLIGRAM DAILY;
     Route: 048
     Dates: end: 20170506
  13. QUININE [Concomitant]
     Active Substance: QUININE
  14. ASCORBIC ACID. [Concomitant]
     Active Substance: ASCORBIC ACID
  15. BISOPROLOL [Concomitant]
     Active Substance: BISOPROLOL
  16. HUMULIN L [Concomitant]
     Active Substance: INSULIN HUMAN
     Dosage: HAD ONLY JUST STARTED - HAD TAKEN THREE DOSES.
  17. HYDROCORTISONE. [Concomitant]
     Active Substance: HYDROCORTISONE

REACTIONS (7)
  - Malaise [Unknown]
  - Hypotension [Recovering/Resolving]
  - Bradycardia [Recovering/Resolving]
  - Blood glucose increased [Unknown]
  - Blood sodium decreased [Unknown]
  - Hyperkalaemia [Unknown]
  - Circulatory collapse [Unknown]
